FAERS Safety Report 9984922 (Version 1)
Quarter: 2014Q1

REPORT INFORMATION
  Report Type: Report from Study
  Country: US (occurrence: US)
  Receive Date: 20140307
  Receipt Date: 20140307
  Transmission Date: 20141002
  Serious: No
  Sender: FDA-Public Use
  Company Number: US-ABBVIE-14P-163-1186419-00

PATIENT
  Age: 63 Year
  Sex: Female

DRUGS (14)
  1. HUMIRA [Suspect]
     Indication: RHEUMATOID ARTHRITIS
     Dates: start: 20131115
  2. FAMOTIDINE [Concomitant]
     Indication: GASTROOESOPHAGEAL REFLUX DISEASE
  3. DEXILANT [Concomitant]
     Indication: GASTROOESOPHAGEAL REFLUX DISEASE
  4. METHOTREXATE [Concomitant]
     Indication: RHEUMATOID ARTHRITIS
     Dosage: EVERY WEDNESDAY
  5. LUBIPROSTONE [Concomitant]
     Indication: CONSTIPATION
  6. CELEBREX [Concomitant]
     Indication: PAIN
  7. PRAVASTATIN [Concomitant]
     Indication: BLOOD CHOLESTEROL
     Dosage: EVERY BEDTIME
  8. CLONAZEPAM [Concomitant]
     Indication: DEPRESSION
  9. SERTRALINE [Concomitant]
     Indication: DEPRESSION
  10. SERTRALINE [Concomitant]
     Indication: ANXIETY
  11. PROBIOTIC [Concomitant]
     Indication: PRODUCT USED FOR UNKNOWN INDICATION
  12. FOLIC ACID [Concomitant]
     Indication: VITAMIN SUPPLEMENTATION
  13. FISH OIL [Concomitant]
     Indication: NUTRITIONAL SUPPLEMENTATION
  14. OTC MAXIMUM MUCOUS RELIEF FOR COLD/FLU/SORE THROAT [Concomitant]
     Indication: SINUS DISORDER

REACTIONS (2)
  - Joint swelling [Recovering/Resolving]
  - Arthralgia [Recovering/Resolving]
